FAERS Safety Report 7754171-X (Version None)
Quarter: 2011Q3

REPORT INFORMATION
  Report Type: 
  Country: None (occurrence: None)
  Receive Date: 20110915
  Receipt Date: 20110906
  Transmission Date: 20111222
  Serious: Yes (Hospitalization)
  Sender: FDA-Public Use
  Company Number: US-ASTRAZENECA-2011SE53664

PATIENT
  Sex: Female

DRUGS (2)
  1. NEXIUM [Suspect]
     Dosage: BID
     Route: 048
  2. PRILOSEC [Suspect]
     Route: 048

REACTIONS (8)
  - THROAT IRRITATION [None]
  - ERUCTATION [None]
  - FLATULENCE [None]
  - DRUG DOSE OMISSION [None]
  - ASPIRATION [None]
  - GASTROOESOPHAGEAL REFLUX DISEASE [None]
  - EAR DISCOMFORT [None]
  - DYSPNOEA [None]
